FAERS Safety Report 7716317-9 (Version None)
Quarter: 2011Q3

REPORT INFORMATION
  Report Type: 
  Country: None (occurrence: None)
  Receive Date: 20110829
  Receipt Date: 20110818
  Transmission Date: 20111222
  Serious: Yes (Other)
  Sender: FDA-Public Use
  Company Number: PHEH2010US03863

PATIENT
  Sex: Male

DRUGS (10)
  1. HYDROCHLOROTHIAZIDE [Concomitant]
  2. TOPROL-XL [Concomitant]
  3. LUPRON [Concomitant]
  4. ASPIRIN [Concomitant]
  5. AMBIEN [Concomitant]
  6. LASIX [Concomitant]
  7. PROTONIX [Concomitant]
  8. LISINOPRIL [Concomitant]
  9. ZOMETA [Suspect]
     Route: 042
  10. LIPITOR [Concomitant]

REACTIONS (41)
  - PROSTATE CANCER [None]
  - PYREXIA [None]
  - HYPERLIPIDAEMIA [None]
  - MITRAL VALVE PROLAPSE [None]
  - BONE DISORDER [None]
  - CHEST PAIN [None]
  - RENAL CYST [None]
  - ABDOMINAL HERNIA [None]
  - DIVERTICULITIS [None]
  - HYPERTENSION [None]
  - HYPERCALCAEMIA [None]
  - CAROTID BRUIT [None]
  - GASTROINTESTINAL HAEMORRHAGE [None]
  - PAIN [None]
  - INTERVERTEBRAL DISC DEGENERATION [None]
  - ANGINA UNSTABLE [None]
  - TRICUSPID VALVE INCOMPETENCE [None]
  - OSTEONECROSIS OF JAW [None]
  - ISCHAEMIA [None]
  - ATELECTASIS [None]
  - SPINAL COMPRESSION FRACTURE [None]
  - BONE NEOPLASM MALIGNANT [None]
  - COLON CANCER [None]
  - ATRIAL FIBRILLATION [None]
  - TYPE 2 DIABETES MELLITUS [None]
  - OBESITY [None]
  - MULTIPLE MYELOMA [None]
  - PULMONARY EMBOLISM [None]
  - PNEUMONIA [None]
  - LUNG NEOPLASM [None]
  - MITRAL VALVE INCOMPETENCE [None]
  - DYSPNOEA [None]
  - CARDIOMEGALY [None]
  - ARTERIOSCLEROSIS [None]
  - ANAEMIA [None]
  - BUNDLE BRANCH BLOCK RIGHT [None]
  - PLEURAL EFFUSION [None]
  - BACK PAIN [None]
  - HYPOAESTHESIA [None]
  - PAIN IN EXTREMITY [None]
  - SCIATICA [None]
